FAERS Safety Report 5376138-1 (Version None)
Quarter: 2007Q3

REPORT INFORMATION
  Report Type: 
  Country: None (occurrence: None)
  Receive Date: 20070702
  Receipt Date: 20070628
  Transmission Date: 20080115
  Serious: Yes (Other)
  Sender: FDA-Public Use
  Company Number: D0053778A

PATIENT
  Sex: Male

DRUGS (1)
  1. ELONTRIL [Suspect]
     Indication: DEPRESSION
     Dosage: 150MG PER DAY
     Route: 048
     Dates: start: 20070101

REACTIONS (3)
  - AGGRESSION [None]
  - BALANCE DISORDER [None]
  - DIZZINESS [None]
